FAERS Safety Report 4763638-8 (Version None)
Quarter: 2005Q3

REPORT INFORMATION
  Report Type: 
  Country: None (occurrence: None)
  Receive Date: 20050908
  Receipt Date: 20050902
  Transmission Date: 20060218
  Serious: Yes (Death)
  Sender: FDA-Public Use
  Company Number: 2005SE04997

PATIENT
  Age: 50 Year
  Sex: Female

DRUGS (7)
  1. QUETIAPINE FUMARATE [Suspect]
     Route: 048
  2. CLONAZEPAM [Concomitant]
     Indication: ANXIETY
  3. CLONAZEPAM [Concomitant]
  4. LAMOTRIGIN [Concomitant]
     Indication: PROPHYLAXIS
     Dosage: 25-100 MG
  5. HALOPERIDOL [Concomitant]
     Indication: PSYCHOTIC DISORDER
  6. PARACETAMOL [Concomitant]
     Indication: CHEST PAIN
  7. PARACETAMOL [Concomitant]
     Indication: ANALGESIC THERAPY

REACTIONS (2)
  - OVERDOSE [None]
  - PULMONARY EMBOLISM [None]
